FAERS Safety Report 23308821 (Version 1)
Quarter: 2023Q4

REPORT INFORMATION
  Report Type: Spontaneous
  Country: US (occurrence: US)
  Receive Date: 20231218
  Receipt Date: 20231218
  Transmission Date: 20240110
  Serious: No
  Sender: FDA-Public Use
  Company Number: US-INSUD PHARMA-2312US08748

PATIENT

DRUGS (1)
  1. SLYND [Suspect]
     Active Substance: DROSPIRENONE
     Indication: Product used for unknown indication
     Dosage: UNKNOWN
     Route: 048
     Dates: start: 202308

REACTIONS (2)
  - Menstruation irregular [Recovered/Resolved]
  - Intentional dose omission [Unknown]

NARRATIVE: CASE EVENT DATE: 20230101
